FAERS Safety Report 23627844 (Version 1)
Quarter: 2024Q1

REPORT INFORMATION
  Report Type: Spontaneous
  Country: EU (occurrence: EU)
  Receive Date: 20240313
  Receipt Date: 20240313
  Transmission Date: 20240410
  Serious: Yes (Hospitalization)
  Sender: FDA-Public Use
  Company Number: None

PATIENT

DRUGS (7)
  1. BUPRENORPHINE HYDROCHLORIDE [Suspect]
     Active Substance: BUPRENORPHINE HYDROCHLORIDE
     Dosage: ACTUELLEMENT OCCASIONNELLE
     Route: 045
  2. COCAINE [Suspect]
     Active Substance: COCAINE
     Dosage: ACTUELLEMENT OCCASIONNELLE
     Route: 045
     Dates: start: 1987
  3. CANNABIS SATIVA SUBSP. INDICA TOP [Suspect]
     Active Substance: CANNABIS SATIVA SUBSP. INDICA TOP
     Dosage: ACTUELLEMENT OCCASIONNELLE
     Route: 055
     Dates: start: 1982
  4. HEROIN [Suspect]
     Active Substance: DIAMORPHINE
     Dosage: ACTUELLEMENT OCCASIONNELLE
     Route: 045
     Dates: start: 1987
  5. NICOTINE\TOBACCO LEAF [Suspect]
     Active Substance: NICOTINE\TOBACCO LEAF
     Dosage: 20G/JOUR
     Route: 055
  6. ALCOHOL [Suspect]
     Active Substance: ALCOHOL
     Dosage: JUSQUE 50U/J
     Route: 048
  7. AMPHETAMINES NOS [Suspect]
     Active Substance: AMPHETAMINES NOS
     Dosage: ACTUELLEMENT OCCASIONNELLE
     Dates: start: 1987

REACTIONS (2)
  - Off label use [Not Recovered/Not Resolved]
  - Drug abuse [Not Recovered/Not Resolved]

NARRATIVE: CASE EVENT DATE: 19820101
